FAERS Safety Report 16849901 (Version 2)
Quarter: 2019Q3

REPORT INFORMATION
  Report Type: Spontaneous
  Country: US (occurrence: US)
  Receive Date: 20190925
  Receipt Date: 20190929
  Transmission Date: 20191005
  Serious: No
  Sender: FDA-Public Use
  Company Number: US-ELI_LILLY_AND_COMPANY-US201909008732

PATIENT
  Sex: Male

DRUGS (5)
  1. KLONOPIN [Concomitant]
     Active Substance: CLONAZEPAM
     Indication: PRODUCT USED FOR UNKNOWN INDICATION
  2. CYMBALTA [Suspect]
     Active Substance: DULOXETINE HYDROCHLORIDE
     Indication: DEPRESSION
     Dosage: 1 DOSAGE FORM, UNKNOWN
     Route: 065
     Dates: start: 20190905
  3. CYMBALTA [Suspect]
     Active Substance: DULOXETINE HYDROCHLORIDE
     Indication: ANXIETY
     Dosage: 2 DOSAGE FORM (ACCIDENTALLY TOOK TWO PILLS), UNKNOWN
     Route: 065
     Dates: start: 201909
  4. CITALOPRAM [Concomitant]
     Active Substance: CITALOPRAM HYDROBROMIDE
     Indication: PRODUCT USED FOR UNKNOWN INDICATION
  5. LAMICTAL [Concomitant]
     Active Substance: LAMOTRIGINE
     Indication: PRODUCT USED FOR UNKNOWN INDICATION

REACTIONS (6)
  - Fatigue [Unknown]
  - Dry mouth [Unknown]
  - Incorrect dose administered [Unknown]
  - Poor quality sleep [Unknown]
  - Hyperhidrosis [Unknown]
  - Somnolence [Unknown]

NARRATIVE: CASE EVENT DATE: 201909
